FAERS Safety Report 12739201 (Version 1)
Quarter: 2016Q3

REPORT INFORMATION
  Report Type: Spontaneous
  Country: US (occurrence: US)
  Receive Date: 20160913
  Receipt Date: 20160913
  Transmission Date: 20161109
  Serious: No
  Sender: FDA-Public Use
  Company Number: None

PATIENT
  Age: 47 Year
  Sex: Female

DRUGS (2)
  1. LOSARTAN 25MG MACLEODS [Suspect]
     Active Substance: LOSARTAN
     Indication: PRODUCT USED FOR UNKNOWN INDICATION
  2. METOPROLOL 25MG CITRON [Suspect]
     Active Substance: METOPROLOL

REACTIONS (2)
  - Product shape issue [None]
  - Product packaging confusion [None]

NARRATIVE: CASE EVENT DATE: 20160828
